FAERS Safety Report 7667725-6 (Version None)
Quarter: 2011Q3

REPORT INFORMATION
  Report Type: 
  Country: None (occurrence: None)
  Receive Date: 20110806
  Receipt Date: 20110721
  Transmission Date: 20111222
  Serious: No
  Sender: FDA-Public Use
  Company Number: US-ABBOTT-11P-163-0840763-00

PATIENT
  Sex: Male
  Weight: 68.554 kg

DRUGS (9)
  1. MILK THISTLE [Concomitant]
     Indication: VITAMIN SUPPLEMENTATION
     Dosage: DAILY
  2. CHLOROTHIAZIDE [Concomitant]
     Indication: DIURETIC THERAPY
  3. GINKO BALOVA [Concomitant]
     Indication: VITAMIN SUPPLEMENTATION
     Dosage: DAILY
  4. 9 OTHER DIFFERENT VITAMIN SUPPLEMENTS [Concomitant]
     Indication: VITAMIN SUPPLEMENTATION
     Dosage: DAILY
  5. NIASPAN [Suspect]
     Indication: BLOOD CHOLESTEROL INCREASED
     Dosage: AT BEDTIME
     Dates: start: 20110604, end: 20110718
  6. VA [Concomitant]
     Indication: VITAMIN SUPPLEMENTATION
     Dosage: DAILY
  7. PRILOSEC [Concomitant]
     Indication: GASTROOESOPHAGEAL REFLUX DISEASE
  8. ATENOLOL [Concomitant]
     Indication: BLOOD PRESSURE
  9. VD [Concomitant]
     Indication: VITAMIN SUPPLEMENTATION
     Dosage: DAILY

REACTIONS (3)
  - ERYTHEMA [None]
  - PRURITUS [None]
  - FLUSHING [None]
